FAERS Safety Report 5822416-9 (Version None)
Quarter: 2008Q3

REPORT INFORMATION
  Report Type: 
  Country: None (occurrence: None)
  Receive Date: 20080721
  Receipt Date: 20080710
  Transmission Date: 20090109
  Serious: Yes (Hospitalization)
  Sender: FDA-Public Use
  Company Number: 2008001611

PATIENT
  Age: 78 Year
  Sex: Male

DRUGS (4)
  1. ERLOTINIB (ERLOTINIB) (TABLET) (ERLOTINIB) [Suspect]
     Indication: GASTROINTESTINAL CARCINOMA
     Dosage: 150 MG QD ORAL
     Route: 048
     Dates: start: 20061120, end: 20070508
  2. BEVACIZUMAB (INJECTION FOR INFUSION) [Suspect]
     Indication: GASTROINTESTINAL CARCINOMA
     Dosage: 750 MG, Q2W, INTRAVENOUS
     Route: 042
     Dates: start: 20061120, end: 20070508
  3. EMPERAL (METOCLOPRAMIDE HYDROCHLORIDE) [Concomitant]
  4. NEXIUM [Concomitant]

REACTIONS (5)
  - BLOOD BILIRUBIN INCREASED [None]
  - CHOLELITHIASIS [None]
  - ENTEROCUTANEOUS FISTULA [None]
  - GASTROINTESTINAL ANASTOMOTIC LEAK [None]
  - VOMITING [None]
